FAERS Safety Report 17676339 (Version 2)
Quarter: 2020Q2

REPORT INFORMATION
  Report Type: Spontaneous
  Country: US (occurrence: US)
  Receive Date: 20200416
  Receipt Date: 20200421
  Transmission Date: 20200714
  Serious: Yes (Life-Threatening, Hospitalization, Other)
  Sender: FDA-Public Use
  Company Number: US-AUROBINDO-AUR-APL-2020-017457

PATIENT
  Age: 55 Year
  Sex: Male

DRUGS (1)
  1. IBUPROFEN. [Suspect]
     Active Substance: IBUPROFEN
     Indication: MYALGIA
     Dosage: UNK
     Route: 065

REACTIONS (8)
  - Syncope [Unknown]
  - Anaemia [Recovering/Resolving]
  - Chronic gastrointestinal bleeding [Unknown]
  - Gastric ulcer [Unknown]
  - Melaena [Recovered/Resolved]
  - Toxicity to various agents [Unknown]
  - Blood lactic acid increased [Recovered/Resolved]
  - Fall [Unknown]
